FAERS Safety Report 18740513 (Version 1)
Quarter: 2021Q1

REPORT INFORMATION
  Report Type: Spontaneous
  Country: IT (occurrence: IT)
  Receive Date: 20210114
  Receipt Date: 20210114
  Transmission Date: 20210419
  Serious: Yes (Other)
  Sender: FDA-Public Use
  Company Number: IT-PFIZER INC-2021019497

PATIENT
  Age: 4 Month
  Sex: Male
  Weight: 5 kg

DRUGS (6)
  1. VINCRISTINE SULFATE. [Suspect]
     Active Substance: VINCRISTINE SULFATE
     Indication: GLIOBLASTOMA
     Dosage: 0.2 MG, CYCLIC
     Route: 042
     Dates: start: 20200601, end: 20200601
  2. PERFALGAN [Concomitant]
     Active Substance: ACETAMINOPHEN
  3. ZOFRAN [Concomitant]
     Active Substance: ONDANSETRON HYDROCHLORIDE
  4. ANTRA [OMEPRAZOLE] [Concomitant]
     Active Substance: OMEPRAZOLE
  5. CYCLOPHOSPHAMIDE. [Suspect]
     Active Substance: CYCLOPHOSPHAMIDE
     Indication: GLIOBLASTOMA
     Dosage: 756 MG, CYCLIC
     Route: 042
     Dates: start: 20200601, end: 20200601
  6. DECADRON [Concomitant]
     Active Substance: DEXAMETHASONE

REACTIONS (2)
  - Off label use [Unknown]
  - Bone marrow failure [Recovering/Resolving]

NARRATIVE: CASE EVENT DATE: 20200609
